FAERS Safety Report 16405927 (Version 1)
Quarter: 2019Q2

REPORT INFORMATION
  Report Type: Report from Study
  Country: DE (occurrence: DE)
  Receive Date: 20190607
  Receipt Date: 20190607
  Transmission Date: 20190711
  Serious: Yes (Hospitalization)
  Sender: FDA-Public Use
  Company Number: DE-MYLANLABS-2019M1052550

PATIENT
  Age: 45 Year
  Sex: Female
  Weight: 72 kg

DRUGS (18)
  1. BISOPROLOL [Concomitant]
     Active Substance: BISOPROLOL
     Indication: TACHYCARDIA
     Dosage: 20 MILLIGRAM, QD
     Route: 065
     Dates: start: 20140612
  2. TRASTUZUMAB. [Suspect]
     Active Substance: TRASTUZUMAB
     Dosage: 430 MILLIGRAM, Q3W
     Route: 042
     Dates: start: 20140721
  3. TRASTUZUMAB. [Suspect]
     Active Substance: TRASTUZUMAB
     Dosage: 430 MILLIGRAM, Q3W
     Route: 042
     Dates: start: 20140604, end: 20140604
  4. MCP [Concomitant]
     Active Substance: METOCLOPRAMIDE HYDROCHLORIDE
     Indication: VOMITING
     Dosage: 180 MILLIGRAM, QD
     Route: 048
     Dates: start: 20140401, end: 20140722
  5. KEVATRIL [Concomitant]
     Active Substance: GRANISETRON HYDROCHLORIDE
     Indication: VOMITING
     Dosage: 1 MILLIGRAM, QD
     Route: 042
     Dates: start: 20140331, end: 20140721
  6. DEXAMETHASON                       /00016001/ [Concomitant]
     Active Substance: DEXAMETHASONE
     Indication: VOMITING
     Dosage: 16 MILLIGRAM, QD
     Route: 048
     Dates: start: 20140330, end: 20140722
  7. DOCETAXEL. [Suspect]
     Active Substance: DOCETAXEL
     Indication: HER-2 POSITIVE BREAST CANCER
     Dosage: LAST DOSE: 16/NOV/2015
     Route: 042
     Dates: start: 20140422, end: 20140721
  8. VENLAFAXINE [Concomitant]
     Active Substance: VENLAFAXINE HYDROCHLORIDE
     Indication: DEPRESSION
     Dosage: 150 MILLIGRAM, QD
     Route: 048
     Dates: start: 2006
  9. TRASTUZUMAB. [Suspect]
     Active Substance: TRASTUZUMAB
     Indication: HER-2 POSITIVE BREAST CANCER
     Dosage: 410 MILLIGRAM, Q3W
     Route: 042
     Dates: start: 20140630, end: 20140630
  10. RAMIPRIL. [Concomitant]
     Active Substance: RAMIPRIL
     Indication: HYPERTENSION
     Dosage: 5 MILLIGRAM, QD
     Route: 048
     Dates: start: 2011
  11. TRASTUZUMAB. [Suspect]
     Active Substance: TRASTUZUMAB
     Dosage: 432 MILLIGRAM, Q3W
     Route: 042
     Dates: start: 20140422, end: 20140512
  12. PERTUZUMAB. [Suspect]
     Active Substance: PERTUZUMAB
     Dosage: 840 MILLIGRAM, TOTAL, LOADING DOSE
     Dates: start: 20140331
  13. DOCETAXEL. [Suspect]
     Active Substance: DOCETAXEL
     Dosage: 135 MILLIGRAM, Q3W
     Route: 042
     Dates: start: 20140531, end: 20140531
  14. TRASTUZUMAB. [Suspect]
     Active Substance: TRASTUZUMAB
     Dosage: 576 MILLIGRAM, TOTAL
     Route: 042
     Dates: start: 20140331, end: 20140331
  15. BISOPROLOL [Concomitant]
     Active Substance: BISOPROLOL
     Indication: HYPERTENSION
     Dosage: 10 MILLIGRAM, QD
     Route: 048
     Dates: start: 2011, end: 20140611
  16. PERTUZUMAB. [Suspect]
     Active Substance: PERTUZUMAB
     Indication: HER-2 POSITIVE BREAST CANCER
     Dosage: MAINTENANCE DOSE LAST DOSE: 16/NOV/2015
     Route: 042
     Dates: start: 20140422
  17. QUETIAPINE. [Concomitant]
     Active Substance: QUETIAPINE
     Indication: DEPRESSION
     Dosage: 25 MILLIGRAM, QD
     Route: 048
     Dates: start: 2006
  18. LONQUEX [Concomitant]
     Active Substance: LIPEGFILGRASTIM
     Indication: PROPHYLAXIS
     Dosage: DAY 2
     Route: 058
     Dates: start: 20140401, end: 20140722

REACTIONS (7)
  - Vomiting [Recovered/Resolved]
  - Nausea [Recovered/Resolved]
  - Neuropathy peripheral [Recovering/Resolving]
  - Mucosal inflammation [Recovered/Resolved]
  - Tachycardia [Recovered/Resolved]
  - Erysipelas [Recovered/Resolved]
  - Dizziness [Recovered/Resolved]

NARRATIVE: CASE EVENT DATE: 20140403
